FAERS Safety Report 9413763 (Version 2)
Quarter: 2013Q3

REPORT INFORMATION
  Report Type: Spontaneous
  Country: US (occurrence: US)
  Receive Date: 20130722
  Receipt Date: 20130821
  Transmission Date: 20140515
  Serious: Yes (Death)
  Sender: FDA-Public Use
  Company Number: US-ROCHE-1251704

PATIENT
  Sex: Male

DRUGS (2)
  1. RITUXAN [Suspect]
     Indication: LYMPHOCYTE COUNT DECREASED
     Dosage: THERAPY STATRTED IN SEP/OCT/2012
     Route: 065
     Dates: end: 201210
  2. RITUXAN [Suspect]
     Indication: LYMPHOCYTE COUNT DECREASED
     Route: 065
     Dates: end: 2013

REACTIONS (1)
  - Lymphocytic infiltration [Fatal]
